FAERS Safety Report 7801340-6 (Version None)
Quarter: 2011Q4

REPORT INFORMATION
  Report Type: 
  Country: None (occurrence: None)
  Receive Date: 20111007
  Receipt Date: 20111003
  Transmission Date: 20120403
  Serious: No
  Sender: FDA-Public Use
  Company Number: US-PFIZER INC-2011235701

PATIENT
  Age: 50 Year
  Sex: Female

DRUGS (1)
  1. PRISTIQ [Suspect]
     Dosage: UNK

REACTIONS (7)
  - AGITATION [None]
  - ANGER [None]
  - ANXIETY [None]
  - MALAISE [None]
  - IRRITABILITY [None]
  - WITHDRAWAL SYNDROME [None]
  - HOSTILITY [None]
